FAERS Safety Report 7520515-7 (Version None)
Quarter: 2011Q2

REPORT INFORMATION
  Report Type: 
  Country: None (occurrence: None)
  Receive Date: 20110602
  Receipt Date: 20110527
  Transmission Date: 20111010
  Serious: Yes (Death, Other)
  Sender: FDA-Public Use
  Company Number: JP-ELI_LILLY_AND_COMPANY-JP201102007357

PATIENT
  Age: 74 Year
  Sex: Male
  Weight: 57 kg

DRUGS (12)
  1. LUPRAC [Concomitant]
     Indication: PULMONARY ARTERIAL HYPERTENSION
     Dosage: 8 MG, DAILY (1/D)
     Route: 048
  2. BASEN [Concomitant]
     Indication: DIABETES MELLITUS
     Dosage: 0.9 MG, DAILY (1/D)
     Route: 048
  3. PANTOSIN [Concomitant]
     Indication: PROPHYLAXIS
     Dosage: 300 MG, DAILY (1/D)
     Route: 048
  4. ALLOPURINOL [Concomitant]
     Indication: GOUT
     Dosage: 200 MG, DAILY (1/D)
     Route: 048
  5. TADALAFIL [Suspect]
     Dosage: 20 MG, DAILY (1/D)
     Route: 048
     Dates: start: 20101026
  6. OXYGEN [Concomitant]
     Indication: PULMONARY ARTERIAL HYPERTENSION
     Route: 065
  7. PLAVIX [Concomitant]
     Indication: CORONARY ARTERIAL STENT INSERTION
     Dosage: 75 MG, DAILY (1/D)
     Route: 048
  8. WARFARIN POTASSIUM [Concomitant]
     Indication: PULMONARY ARTERIAL HYPERTENSION
     Dosage: 1.5 MG, DAILY (1/D)
     Route: 048
  9. AMARYL [Concomitant]
     Indication: DIABETES MELLITUS
     Dosage: 2 MG, DAILY (1/D)
     Route: 048
  10. MAGMITT [Concomitant]
     Indication: PROPHYLAXIS
     Dosage: 1500 MG, DAILY (1/D)
     Route: 048
  11. TADALAFIL [Suspect]
     Indication: PULMONARY ARTERIAL HYPERTENSION
     Dosage: 40 MG, DAILY (1/D)
     Route: 048
     Dates: start: 20100929, end: 20101025
  12. FUROSEMIDE [Concomitant]
     Indication: PULMONARY ARTERIAL HYPERTENSION
     Dosage: 20 MG, DAILY (1/D)
     Route: 048

REACTIONS (2)
  - HYPOXIA [None]
  - DISEASE PROGRESSION [None]
